FAERS Safety Report 4780258-X (Version None)
Quarter: 2005Q3

REPORT INFORMATION
  Report Type: 
  Country: None (occurrence: None)
  Receive Date: 20050926
  Receipt Date: 20050909
  Transmission Date: 20060218
  Serious: Yes (Hospitalization)
  Sender: FDA-Public Use
  Company Number: 2005-01918

PATIENT
  Age: 59 Year
  Sex: Male
  Weight: 85.4 kg

DRUGS (2)
  1. VELCADE [Suspect]
     Indication: NON-SMALL CELL LUNG CANCER
     Dosage: 1.25 MG/M2, IV BOLUS
     Route: 040
     Dates: start: 20050712, end: 20050819
  2. TOPOTECAN(TOPOTECAN) [Suspect]
     Indication: NON-SMALL CELL LUNG CANCER
     Dosage: 1.50 MG/M2, INTRAVENOUS; 1.25 MG/M2, INTRAVENOUS
     Route: 042
     Dates: start: 20050712

REACTIONS (1)
  - PULMONARY EMBOLISM [None]
